FAERS Safety Report 8587107-2 (Version None)
Quarter: 2012Q3

REPORT INFORMATION
  Report Type: 
  Country: None (occurrence: None)
  Receive Date: 20120810
  Receipt Date: 20120712
  Transmission Date: 20120928
  Serious: Yes (Death)
  Sender: FDA-Public Use
  Company Number: ZA-MYLANLABS-2012S1016361

PATIENT
  Age: 24 Year
  Sex: Female

DRUGS (2)
  1. WARFARIN SODIUM [Suspect]
     Indication: ANTICOAGULANT THERAPY
     Dosage: 5MG DAILY
     Route: 065
  2. WARFARIN SODIUM [Suspect]
     Dosage: 2.5MG FOR 5-7D
     Route: 065

REACTIONS (3)
  - MATERNAL EXPOSURE DURING PREGNANCY [None]
  - THROMBOSIS [None]
  - CEREBRAL HAEMORRHAGE [None]
